FAERS Safety Report 8422720-4 (Version None)
Quarter: 2012Q2

REPORT INFORMATION
  Report Type: 
  Country: None (occurrence: None)
  Receive Date: 20120608
  Receipt Date: 20120525
  Transmission Date: 20120825
  Serious: Yes (Hospitalization)
  Sender: FDA-Public Use
  Company Number: AU-ROCHE-1072726

PATIENT
  Sex: Male
  Weight: 68 kg

DRUGS (2)
  1. LEVETIRACETAM [Concomitant]
     Dates: start: 20091105
  2. AVASTIN [Suspect]
     Indication: BRAIN NEOPLASM MALIGNANT
     Route: 042
     Dates: start: 20091215

REACTIONS (1)
  - DYSURIA [None]
